FAERS Safety Report 9240407 (Version 1)
Quarter: 2013Q2

REPORT INFORMATION
  Report Type: Spontaneous
  Country: IT (occurrence: None)
  Receive Date: 20130417
  Receipt Date: 20130417
  Transmission Date: 20140414
  Serious: Yes (Life-Threatening)
  Sender: FDA-Public Use
  Company Number: 2013AP004346

PATIENT
  Sex: Female

DRUGS (2)
  1. QUETIAPINE FUMARATE (QUETIAPINE FUMARATE) [Suspect]
  2. LORAZEPAM (LORAZEPAM) [Suspect]

REACTIONS (2)
  - Depressed level of consciousness [None]
  - Toxicity to various agents [None]
